FAERS Safety Report 23872453 (Version 2)
Quarter: 2024Q2

REPORT INFORMATION
  Report Type: Spontaneous
  Country: US (occurrence: None)
  Receive Date: 20240520
  Receipt Date: 20240624
  Transmission Date: 20240716
  Serious: No
  Sender: FDA-Public Use
  Company Number: 2024A104844

PATIENT
  Sex: Male

DRUGS (1)
  1. IMFINZI [Suspect]
     Active Substance: DURVALUMAB

REACTIONS (5)
  - Pruritus [Recovering/Resolving]
  - Malaise [Unknown]
  - Cough [Unknown]
  - Rash [Unknown]
  - Tinea infection [Unknown]
